FAERS Safety Report 4981644-5 (Version None)
Quarter: 2006Q2

REPORT INFORMATION
  Report Type: 
  Country: None (occurrence: None)
  Receive Date: 20060425
  Receipt Date: 20060419
  Transmission Date: 20061013
  Serious: Yes (Other)
  Sender: FDA-Public Use
  Company Number: PHBS2006BE05788

PATIENT
  Age: 50 Year
  Sex: Male

DRUGS (6)
  1. RITALIN [Suspect]
     Indication: ASTHENIA
     Dosage: 10 MG, QD
     Route: 048
  2. RITALIN [Suspect]
     Dosage: 10 MG, BID
     Route: 048
  3. RITALIN [Suspect]
     Dosage: 10 MG, TID
     Route: 048
  4. RISPERDAL [Concomitant]
  5. TRAZOLAN [Concomitant]
  6. OTHER MEDICATIONS (UNSPECIFIED) [Concomitant]

REACTIONS (5)
  - ANOREXIA [None]
  - DEPRESSION [None]
  - INSOMNIA [None]
  - REBOUND EFFECT [None]
  - WEIGHT DECREASED [None]
